FAERS Safety Report 7867891-3 (Version None)
Quarter: 2011Q4

REPORT INFORMATION
  Report Type: 
  Country: None (occurrence: None)
  Receive Date: 20111024
  Receipt Date: 20111019
  Transmission Date: 20120403
  Serious: Yes (Hospitalization)
  Sender: FDA-Public Use
  Company Number: 2011SP038079

PATIENT
  Age: 41 Year
  Sex: Male

DRUGS (5)
  1. SEROQUEL [Concomitant]
  2. TRAZODONE HYDROCHLORIDE [Concomitant]
  3. REMERON [Suspect]
     Indication: DEPRESSION
     Dosage: 15 MG;QD;PO
     Route: 048
     Dates: start: 20110126, end: 20110221
  4. SULPIRIDE [Concomitant]
  5. CLONAZEPAM [Concomitant]

REACTIONS (5)
  - DYSPHAGIA [None]
  - CARBON MONOXIDE POISONING [None]
  - ALTERED STATE OF CONSCIOUSNESS [None]
  - PARKINSONISM [None]
  - CONDITION AGGRAVATED [None]
